FAERS Safety Report 24053913 (Version 1)
Quarter: 2024Q3

REPORT INFORMATION
  Report Type: Spontaneous
  Country: GB (occurrence: GB)
  Receive Date: 20240705
  Receipt Date: 20240705
  Transmission Date: 20241016
  Serious: Yes (Other)
  Sender: ALKEM
  Company Number: None

PATIENT
  Age: 84 Year
  Sex: Female
  Weight: 59 kg

DRUGS (7)
  1. SOLIFENACIN [Suspect]
     Active Substance: SOLIFENACIN
     Indication: Bladder disorder
     Dosage: 5 MILLIGRAM, HS, TABLET (AT NIGHT FOR BLADDER SYMP)
     Route: 065
     Dates: start: 20230821
  2. CANDESARTAN [Concomitant]
     Active Substance: CANDESARTAN
     Indication: Product used for unknown indication
     Dosage: 1 DOSAGE FORM, QD
     Route: 065
     Dates: start: 20221211
  3. IBUPROFEN [Concomitant]
     Active Substance: IBUPROFEN
     Indication: Product used for unknown indication
     Dosage: 3 DOSAGE FORM, QD (APPLY)
     Route: 065
     Dates: start: 20230821
  4. ACETAMINOPHEN [Concomitant]
     Active Substance: ACETAMINOPHEN
     Indication: Product used for unknown indication
     Dosage: UNK, QID (ONE TO TWO TO BE TAKEN UP TO FOUR TIMES DAILY)
     Route: 065
     Dates: start: 20221211
  5. PREDNISOLONE [Concomitant]
     Active Substance: PREDNISOLONE
     Indication: Product used for unknown indication
     Dosage: 1 DOSAGE FORM, QD (PLUS 5 MG TABLET)
     Route: 065
     Dates: start: 20221211
  6. SERTRALINE [Concomitant]
     Active Substance: SERTRALINE HYDROCHLORIDE
     Indication: Anxiety
     Dosage: 1 DOSAGE FORM, QD (MORNING FOR ANXIETY/DEPRESSION)
     Route: 065
     Dates: start: 20221211
  7. SERTRALINE [Concomitant]
     Active Substance: SERTRALINE HYDROCHLORIDE
     Indication: Depression

REACTIONS (2)
  - Hypersensitivity [Unknown]
  - Confusional state [Recovered/Resolved]
